FAERS Safety Report 23470499 (Version 1)
Quarter: 2024Q1

REPORT INFORMATION
  Report Type: Spontaneous
  Country: SE (occurrence: SE)
  Receive Date: 20240202
  Receipt Date: 20240202
  Transmission Date: 20240409
  Serious: Yes (Hospitalization)
  Sender: FDA-Public Use
  Company Number: None

PATIENT
  Age: 14 Year
  Sex: Female
  Weight: 62 kg

DRUGS (1)
  1. ADALIMUMAB [Suspect]
     Active Substance: ADALIMUMAB\ISOPROPYL ALCOHOL
     Indication: Crohn^s disease
     Dosage: STARTING DOSE FOUR INJECTIONS AFTER TWO WEEKS TWO INJECTIONS, THEN ONE INJECTION EVERY TWO WEEKS.
     Route: 058
     Dates: start: 20231011, end: 20231129

REACTIONS (4)
  - Cough [Unknown]
  - Nasopharyngitis [Unknown]
  - Abdominal pain [Not Recovered/Not Resolved]
  - Pyrexia [Unknown]

NARRATIVE: CASE EVENT DATE: 20231001
